FAERS Safety Report 7335056-X (Version None)
Quarter: 2011Q1

REPORT INFORMATION
  Report Type: 
  Country: None (occurrence: None)
  Receive Date: 20110307
  Receipt Date: 20110304
  Transmission Date: 20110831
  Serious: Yes (Hospitalization)
  Sender: FDA-Public Use
  Company Number: IT-ROCHE-763467

PATIENT
  Sex: Female

DRUGS (2)
  1. ROFERON-A [Concomitant]
     Dosage: DOSE: 3M IU
     Route: 058
     Dates: start: 20100630, end: 20100917
  2. AVASTIN [Suspect]
     Dosage: CYCLIC FREQUENCY
     Route: 042
     Dates: start: 20100603, end: 20100917

REACTIONS (2)
  - RENAL FAILURE ACUTE [None]
  - GASTRIC ULCER HAEMORRHAGE [None]
